FAERS Safety Report 8330957-8 (Version None)
Quarter: 2012Q2

REPORT INFORMATION
  Report Type: 
  Country: None (occurrence: None)
  Receive Date: 20120502
  Receipt Date: 20120404
  Transmission Date: 20120825
  Serious: No
  Sender: FDA-Public Use
  Company Number: US-AMGEN-USASP2012021500

PATIENT
  Age: 65 Year
  Sex: Male
  Weight: 95.238 kg

DRUGS (22)
  1. FOLIC ACID [Concomitant]
     Dosage: ONE TABLET DAILY
  2. ASPIRIN [Concomitant]
     Dosage: 81 MG, QD
  3. NAPROXEN (ALEVE) [Concomitant]
     Dosage: 220 MG, PRN
  4. CRESTOR [Concomitant]
     Dosage: 5 MG, QD
  5. FINASTERIDE [Concomitant]
     Dosage: 5 MG, ONE DAILY
  6. VITAMIN C                          /00008001/ [Concomitant]
     Dosage: 1000 MG, QD
  7. PREDNISONE [Concomitant]
     Dosage: 4 MG, BID
     Route: 048
  8. MULTIVITAMIN                       /00097801/ [Concomitant]
     Dosage: UNK UNK, QD
  9. NORVASC [Concomitant]
     Dosage: 2.5 MG, QHS
  10. CITALOPRAM HYDROBROMIDE [Concomitant]
     Dosage: 20 MG, HALF TABLET DAILY
  11. ENBREL [Suspect]
     Indication: RHEUMATOID ARTHRITIS
     Dosage: 50 MG, QWK
     Route: 058
     Dates: start: 20120229
  12. AVALIDE [Concomitant]
     Dosage: 12.5 MG, ONE TABLET DAILY
  13. PLAVIX [Concomitant]
     Dosage: 75 MG, QD, ONCE ADAY EIGHT AM
  14. DULERA [Concomitant]
     Dosage: TWO PUFFS BID
  15. OMEPRAZOLE [Concomitant]
     Dosage: 20 MG, ONE CAPSULE DAILY
  16. ATIVAN [Concomitant]
     Dosage: 1 MG, PRN DAILY ANXIETY PER BEHAVIORAL HEALTH
  17. OXYCODONE/ACETAMINOPHEN [Concomitant]
     Dosage: 325 MG, ONE TO TWO TABLETS EVERY FOUR TO SIX HOURS PRN
  18. FISH OIL [Concomitant]
     Dosage: THREE TABLET DAILY
  19. FLOMAX [Concomitant]
     Dosage: ONE CAPSULE DAILY
  20. METHOTREXATE [Concomitant]
     Dosage: 25 MG, QWK
     Route: 058
  21. PROAIR HFA [Concomitant]
     Dosage: UNK UNK, PRN
  22. NITROGLYCERIN [Concomitant]

REACTIONS (2)
  - UPPER RESPIRATORY TRACT INFECTION [None]
  - BRONCHITIS [None]
